FAERS Safety Report 8432832-7 (Version None)
Quarter: 2012Q2

REPORT INFORMATION
  Report Type: 
  Country: None (occurrence: None)
  Receive Date: 20120613
  Receipt Date: 20120606
  Transmission Date: 20120825
  Serious: Yes (Hospitalization)
  Sender: FDA-Public Use
  Company Number: JP-EISAI INC-E7389-02553-SPO-JP

PATIENT
  Age: 75 Year
  Sex: Female
  Weight: 40 kg

DRUGS (8)
  1. MIYA BM [Concomitant]
     Route: 048
  2. GASMOTIN [Concomitant]
     Indication: GASTRITIS
     Route: 048
  3. GOODMIN [Concomitant]
     Indication: INSOMNIA
     Route: 048
  4. HALAVEN [Suspect]
     Indication: BREAST CANCER RECURRENT
     Route: 041
     Dates: start: 20111122, end: 20120219
  5. MARZULENE-S [Concomitant]
     Indication: GASTRITIS
     Route: 048
  6. CANDESARTAN CILEXETIL [Concomitant]
     Indication: HYPERTENSION
     Route: 048
  7. WARFARIN SODIUM [Concomitant]
     Indication: CEREBROVASCULAR ACCIDENT PROPHYLAXIS
     Route: 048
  8. LANSOPRAZOLE [Concomitant]
     Route: 048

REACTIONS (1)
  - INFLUENZA [None]
